FAERS Safety Report 22162039 (Version 1)
Quarter: 2023Q1

REPORT INFORMATION
  Report Type: Spontaneous
  Country: US (occurrence: US)
  Receive Date: 20230331
  Receipt Date: 20230331
  Transmission Date: 20230418
  Serious: No
  Sender: FDA-Public Use
  Company Number: US-SA-SAC20230329001144

PATIENT
  Sex: Female
  Weight: 25.8 kg

DRUGS (1)
  1. DUPIXENT [Suspect]
     Active Substance: DUPILUMAB
     Indication: Psoriasis
     Dosage: 300MG Q4W
     Route: 058

REACTIONS (2)
  - Skin fissures [Unknown]
  - Product use in unapproved indication [Unknown]
